FAERS Safety Report 8126310-2 (Version None)
Quarter: 2012Q1

REPORT INFORMATION
  Report Type: 
  Country: None (occurrence: None)
  Receive Date: 20120209
  Receipt Date: 20120208
  Transmission Date: 20120608
  Serious: Yes (Hospitalization, Other)
  Sender: FDA-Public Use
  Company Number: US-AMGEN-USASP2012004204

PATIENT
  Age: 29 Year
  Sex: Female

DRUGS (7)
  1. SULFASALAZINE [Concomitant]
     Dosage: UNK
  2. ENBREL [Suspect]
     Indication: RHEUMATOID ARTHRITIS
     Dosage: 50 MG, QWK
     Dates: start: 20101102, end: 20101201
  3. ENBREL [Suspect]
     Dosage: 50 MG, QWK
     Route: 058
     Dates: start: 20101101, end: 20101201
  4. PLAQUENIL [Concomitant]
     Dosage: UNK
  5. XOPENEX [Concomitant]
     Dosage: UNK UNK, PRN
  6. PREDNISONE [Concomitant]
     Dosage: 10 MG, BID
     Route: 048
  7. VITAMINS                           /00067501/ [Concomitant]
     Dosage: UNK UNK, QD
     Route: 048

REACTIONS (6)
  - ANAESTHETIC COMPLICATION PULMONARY [None]
  - UTERINE LEIOMYOMA [None]
  - CAESAREAN SECTION [None]
  - RESPIRATORY ARREST [None]
  - OBSTRUCTED LABOUR [None]
  - PREMATURE LABOUR [None]
